FAERS Safety Report 18174116 (Version 1)
Quarter: 2020Q3

REPORT INFORMATION
  Report Type: Spontaneous
  Country: US (occurrence: US)
  Receive Date: 20200819
  Receipt Date: 20200819
  Transmission Date: 20201103
  Serious: Yes (Hospitalization)
  Sender: FDA-Public Use
  Company Number: None

PATIENT
  Age: 20 Year
  Sex: Female

DRUGS (9)
  1. LEVOTHYROXIN [Concomitant]
     Active Substance: LEVOTHYROXINE
  2. AFINITOR [Suspect]
     Active Substance: EVEROLIMUS
     Indication: ADRENAL GLAND CANCER
     Route: 048
     Dates: start: 20200414
  3. PARICALCITOL. [Concomitant]
     Active Substance: PARICALCITOL
  4. TRI?LO [Concomitant]
  5. HYDROMORPHON [Concomitant]
     Active Substance: HYDROMORPHONE
  6. CEFIXIME. [Concomitant]
     Active Substance: CEFIXIME
  7. PAIN RELIEF NOS [Concomitant]
     Active Substance: CAMPHOR (SYNTHETIC)\LEVOMENTHOL\MENTHYL SALICYLATE OR CAMPHOR (SYNTHETIC)\MENTHOL\MENTHYL SALICYLATE OR MENTHOL\MENTHYL SALICYLATE
  8. ONDANSETRON [Concomitant]
     Active Substance: ONDANSETRON
  9. GRANISETRON [Concomitant]
     Active Substance: GRANISETRON

REACTIONS (1)
  - Neoplasm malignant [None]

NARRATIVE: CASE EVENT DATE: 20200813
